FAERS Safety Report 11358820 (Version 1)
Quarter: 2015Q3

REPORT INFORMATION
  Report Type: Spontaneous
  Country: US (occurrence: None)
  Receive Date: 20150807
  Receipt Date: 20150807
  Transmission Date: 20151125
  Serious: No
  Sender: FDA-Public Use
  Company Number: None

PATIENT
  Age: 31 Year
  Sex: Female
  Weight: 68.95 kg

DRUGS (6)
  1. VITAPAK [Concomitant]
  2. ADDERALL [Concomitant]
     Active Substance: AMPHETAMINE ASPARTATE\AMPHETAMINE SULFATE\DEXTROAMPHETAMINE SACCHARATE\DEXTROAMPHETAMINE SULFATE
  3. VITAMIN B [Concomitant]
     Active Substance: VITAMIN B
  4. NUVARING [Concomitant]
     Active Substance: ETHINYL ESTRADIOL\ETONOGESTREL
  5. GNC [Concomitant]
  6. AMPHETAMINE ER 20 MG ACT [Suspect]
     Active Substance: AMPHETAMINE ASPARTATE\AMPHETAMINE SULFATE\DEXTROAMPHETAMINE SACCHARATE\DEXTROAMPHETAMINE SULFATE
     Indication: ATTENTION DEFICIT/HYPERACTIVITY DISORDER
     Dosage: TAKEN BY MOUTH  ( 2 PILLS)
     Dates: start: 20150706, end: 20150806

REACTIONS (4)
  - Product substitution issue [None]
  - Disturbance in attention [None]
  - Drug ineffective [None]
  - Thinking abnormal [None]

NARRATIVE: CASE EVENT DATE: 20150722
